FAERS Safety Report 7331794-3 (Version None)
Quarter: 2011Q1

REPORT INFORMATION
  Report Type: 
  Country: None (occurrence: None)
  Receive Date: 20110304
  Receipt Date: 20091009
  Transmission Date: 20110831
  Serious: No
  Sender: FDA-Public Use
  Company Number: US-PFIZER INC-001-0073-990167

PATIENT
  Sex: Male
  Weight: 73.469 kg

DRUGS (6)
  1. TUMS [Interacting]
     Route: 065
  2. VITAMIN E [Concomitant]
  3. MULTI-VITAMIN [Concomitant]
  4. DILANTIN [Suspect]
     Indication: CONVULSION
     Dosage: 100 MG IN AM, 200 MG AT HS
     Route: 048
     Dates: start: 19941001
  5. BETACAROTENE [Concomitant]
  6. ASCORBIC ACID [Concomitant]

REACTIONS (3)
  - DRUG INTERACTION [None]
  - AURA [None]
  - DYSARTHRIA [None]
